FAERS Safety Report 4477122-2 (Version None)
Quarter: 2004Q4

REPORT INFORMATION
  Report Type: 
  Country: None (occurrence: None)
  Receive Date: 20041018
  Receipt Date: 20041006
  Transmission Date: 20050328
  Serious: Yes (Hospitalization)
  Sender: FDA-Public Use
  Company Number: PHRM2004FR03034

PATIENT
  Age: 56 Year
  Sex: Male

DRUGS (15)
  1. VOLTAREN [Suspect]
     Indication: GOUT
     Dosage: 1 DF/DAY AS NEEDED
     Route: 048
  2. VOLTAREN [Suspect]
     Dosage: 1 DF, QD
     Route: 048
     Dates: start: 20040711
  3. VOLTAREN [Suspect]
     Dosage: 1 DF, QD
     Route: 048
     Dates: start: 20040716, end: 20040718
  4. NORVIR [Suspect]
     Indication: ACQUIRED IMMUNODEFICIENCY SYNDROME
     Dosage: 1 DF, QD
     Route: 048
     Dates: start: 20040701, end: 20040712
  5. NORVIR [Suspect]
     Dosage: 1 DF, QD
     Route: 048
     Dates: start: 20040716, end: 20040718
  6. SUSTIVA [Suspect]
     Indication: ACQUIRED IMMUNODEFICIENCY SYNDROME
     Route: 048
     Dates: start: 20040701, end: 20040712
  7. AGENERASE [Suspect]
     Indication: ACQUIRED IMMUNODEFICIENCY SYNDROME
     Dosage: 1 DF, QD
     Route: 048
     Dates: start: 20040701, end: 20040712
  8. AGENERASE [Suspect]
     Dosage: 1 DF, QD
     Route: 048
     Dates: start: 20040716, end: 20040718
  9. KALETRA [Suspect]
     Indication: ACQUIRED IMMUNODEFICIENCY SYNDROME
     Dosage: 1 DF, QD
     Route: 048
     Dates: start: 20040701, end: 20040712
  10. KALETRA [Suspect]
     Dosage: 1 DF, QD
     Route: 048
     Dates: start: 20040716, end: 20040718
  11. VIREAD [Suspect]
     Indication: ACQUIRED IMMUNODEFICIENCY SYNDROME
     Dosage: 1 DF, QD
     Route: 048
     Dates: start: 20040701, end: 20040712
  12. VIREAD [Suspect]
     Dosage: 1 DF, QD
     Route: 048
     Dates: start: 20040716, end: 20040718
  13. BACTRIM [Concomitant]
  14. MOPRAL [Concomitant]
     Dosage: UNK, UNK
     Route: 048
     Dates: start: 20040711
  15. MOPRAL [Concomitant]
     Route: 048
     Dates: start: 20040716, end: 20040718

REACTIONS (12)
  - ACUTE PULMONARY OEDEMA [None]
  - ANURIA [None]
  - BLOOD CREATININE INCREASED [None]
  - DYSPNOEA [None]
  - EXTRASYSTOLES [None]
  - HYPERKALAEMIA [None]
  - NEPHRITIS INTERSTITIAL [None]
  - PROTEINURIA [None]
  - RASH [None]
  - RENAL FAILURE ACUTE [None]
  - RENAL TUBULAR NECROSIS [None]
  - SENSE OF OPPRESSION [None]
